FAERS Safety Report 7138810-2 (Version None)
Quarter: 2010Q4

REPORT INFORMATION
  Report Type: 
  Country: None (occurrence: None)
  Receive Date: 20101206
  Receipt Date: 20101130
  Transmission Date: 20110411
  Serious: Yes (Death, Other)
  Sender: FDA-Public Use
  Company Number: US-ELI_LILLY_AND_COMPANY-US201012000276

PATIENT
  Sex: Female

DRUGS (19)
  1. SOMATROPIN [Suspect]
     Dosage: 0.2 MG, DAILY (1/D)
  2. TENORMIN [Concomitant]
     Dosage: 100 MG, DAILY (1/D)
     Route: 048
  3. METFORMIN HCL [Concomitant]
     Dosage: 500 MG, 2/D
     Route: 048
  4. SYNTHROID [Concomitant]
     Dosage: 150 UG, DAILY (1/D)
     Route: 048
  5. QUINAPRIL [Concomitant]
     Dosage: 40 MG, DAILY (1/D)
  6. FELODIPINE [Concomitant]
     Dosage: 5 MG, DAILY (1/D)
  7. CLONIDINE HCL [Concomitant]
     Dosage: 0.1 MG, 1 TABLET EVERY MORNING AND TWO TABLETS IN THE EVENING
  8. COLECALCIFEROL [Concomitant]
     Dosage: 1000 U, DAILY (1/D)
  9. IBUPROFEN [Concomitant]
     Dosage: 1 D/F, AS NEEDED
  10. ASPIRIN [Concomitant]
     Dosage: 325 MG, DAILY (1/D)
  11. BENADRYL [Concomitant]
     Dosage: 1 D/F, 4/D
  12. GLUCOSAMINE CHONDROITIN [Concomitant]
     Dosage: 1 D/F, DAILY (1/D)
  13. MSM [Concomitant]
     Dosage: 1 D/F, DAILY (1/D)
  14. ASCORBIC ACID [Concomitant]
     Dosage: 1 D/F, DAILY (1/D)
  15. VITAMIN B COMPLEX /06442901/ [Concomitant]
     Dosage: 1 D/F, DAILY (1/D)
  16. LOVAZA [Concomitant]
     Dosage: 1 D/F, DAILY (1/D)
  17. LIPITOR [Concomitant]
     Dosage: 10 MG, 1/2 TABLET THREE TIMES WEEKLY
     Route: 048
  18. SPIRONOLACTONE [Concomitant]
     Dosage: 50 MG, 2/D
  19. CORTEF [Concomitant]
     Dosage: 20 MG, 1 TABLET EVERY MORNING AND HALF TABLET EVERY EVENING

REACTIONS (3)
  - CARDIAC ARREST [None]
  - DYSARTHRIA [None]
  - ELECTROLYTE IMBALANCE [None]
